FAERS Safety Report 15640047 (Version 2)
Quarter: 2018Q4

REPORT INFORMATION
  Report Type: Spontaneous
  Country: CH (occurrence: CH)
  Receive Date: 20181120
  Receipt Date: 20181204
  Transmission Date: 20190205
  Serious: Yes (Other)
  Sender: FDA-Public Use
  Company Number: CH-ELI_LILLY_AND_COMPANY-CH201811006277

PATIENT
  Age: 65 Year
  Sex: Female
  Weight: 85 kg

DRUGS (6)
  1. TAVEGYL [Concomitant]
     Active Substance: CLEMASTINE FUMARATE
     Indication: PREMEDICATION
     Dosage: 4 MG, UNKNOWN
     Route: 065
     Dates: start: 20181108
  2. ONDANSETRON [Concomitant]
     Active Substance: ONDANSETRON
     Indication: PRODUCT USED FOR UNKNOWN INDICATION
     Dosage: UNK, UNKNOWN
     Route: 065
  3. LARTRUVO [Suspect]
     Active Substance: OLARATUMAB
     Indication: SOFT TISSUE SARCOMA
     Dosage: 1200 MG, UNKNOWN
     Route: 042
     Dates: start: 20181108
  4. PERFALGAN [Concomitant]
     Active Substance: ACETAMINOPHEN
     Indication: PREMEDICATION
     Dosage: 1 G, UNKNOWN
     Route: 065
     Dates: start: 20181108
  5. LARTRUVO [Suspect]
     Active Substance: OLARATUMAB
     Dosage: UNK UNK, UNKNOWN
     Route: 065
     Dates: start: 20181112
  6. SOLU-MEDROL [Concomitant]
     Active Substance: METHYLPREDNISOLONE SODIUM SUCCINATE
     Indication: PREMEDICATION
     Dosage: 125 MG, UNKNOWN
     Route: 065
     Dates: start: 20181108

REACTIONS (2)
  - Infusion related reaction [Recovered/Resolved]
  - Off label use [Unknown]

NARRATIVE: CASE EVENT DATE: 20181108
